FAERS Safety Report 8585403-6 (Version None)
Quarter: 2012Q3

REPORT INFORMATION
  Report Type: 
  Country: None (occurrence: None)
  Receive Date: 20120810
  Receipt Date: 20120803
  Transmission Date: 20120928
  Serious: Yes (Other)
  Sender: FDA-Public Use
  Company Number: ES-ROXANE LABORATORIES, INC.-2012-RO-01638RO

PATIENT
  Age: 26 Year
  Sex: Male
  Weight: 70 kg

DRUGS (5)
  1. AZATHIOPRINE SODIUM [Suspect]
     Indication: CROHN'S DISEASE
     Dosage: 150 MG
  2. AZATHIOPRINE SODIUM [Suspect]
     Dosage: 150 MG
  3. PREDNISONE TAB [Suspect]
     Indication: ANTIFUNGAL PROPHYLAXIS
     Dosage: 50 MEQ
  4. AZATHIOPRINE SODIUM [Suspect]
     Dosage: 50 MG
  5. PREDNISONE TAB [Suspect]
     Indication: CROHN'S DISEASE
     Dosage: 45 MG

REACTIONS (4)
  - PAPILLOMA VIRAL INFECTION [None]
  - DRUG DEPENDENCE [None]
  - LYMPHOPENIA [None]
  - CROHN'S DISEASE [None]
